FAERS Safety Report 11931507 (Version 1)
Quarter: 2016Q1

REPORT INFORMATION
  Report Type: Spontaneous
  Country: US (occurrence: US)
  Receive Date: 20160120
  Receipt Date: 20160120
  Transmission Date: 20160526
  Serious: No
  Sender: FDA-Public Use
  Company Number: US-INCYTE CORPORATION-2015IN005890

PATIENT
  Age: 84 Year
  Sex: Male

DRUGS (8)
  1. CILOSTAZOL. [Concomitant]
     Active Substance: CILOSTAZOL
  2. Q-10 CO-ENZYME [Concomitant]
  3. JAKAFI [Suspect]
     Active Substance: RUXOLITINIB
     Dosage: 10 MG, BID
     Route: 048
     Dates: start: 201507
  4. HYDROCHLOROTHIAZIDE. [Concomitant]
     Active Substance: HYDROCHLOROTHIAZIDE
  5. CALCIUM [Concomitant]
     Active Substance: CALCIUM
  6. CENTRUM SILVER                     /02363801/ [Concomitant]
     Active Substance: MINERALS\VITAMINS
  7. ASPIRIN. [Concomitant]
     Active Substance: ASPIRIN
  8. ANAGRELIDE [Suspect]
     Active Substance: ANAGRELIDE
     Dosage: UNK
     Dates: end: 20151002

REACTIONS (10)
  - Posture abnormal [Unknown]
  - Fatigue [Unknown]
  - Amnesia [Unknown]
  - Crying [Unknown]
  - Abdominal discomfort [Unknown]
  - Pain [Unknown]
  - Puncture site haemorrhage [Unknown]
  - Dizziness [Unknown]
  - Asthenia [Unknown]
  - Gait disturbance [Unknown]

NARRATIVE: CASE EVENT DATE: 201510
